FAERS Safety Report 6827337-0 (Version None)
Quarter: 2010Q3

REPORT INFORMATION
  Report Type: 
  Country: None (occurrence: None)
  Receive Date: 20100709
  Receipt Date: 20070110
  Transmission Date: 20110219
  Serious: No
  Sender: FDA-Public Use
  Company Number: US-PFIZER INC-2007003940

PATIENT
  Sex: Male
  Weight: 94.35 kg

DRUGS (2)
  1. CHANTIX [Suspect]
     Dates: start: 20061101
  2. SYNTHROID [Concomitant]

REACTIONS (1)
  - INSOMNIA [None]
